FAERS Safety Report 4907687-5 (Version None)
Quarter: 2006Q1

REPORT INFORMATION
  Report Type: 
  Country: None (occurrence: None)
  Receive Date: 20060207
  Receipt Date: 20060125
  Transmission Date: 20060701
  Serious: No
  Sender: FDA-Public Use
  Company Number: 20062762

PATIENT
  Sex: Male

DRUGS (1)
  1. LIORESAL [Suspect]
     Indication: MUSCLE SPASTICITY
     Dosage: 60 MCG, DAILY, INTRATHECAL
     Route: 037

REACTIONS (3)
  - DEVICE RELATED INFECTION [None]
  - PSYCHOTIC DISORDER [None]
  - WHITE BLOOD CELL COUNT INCREASED [None]
